FAERS Safety Report 9330887 (Version 1)
Quarter: 2013Q2

REPORT INFORMATION
  Report Type: Spontaneous
  Country: US (occurrence: None)
  Receive Date: 20130531
  Receipt Date: 20130531
  Transmission Date: 20140414
  Serious: Yes (Hospitalization)
  Sender: FDA-Public Use
  Company Number: CA-ALSI-201300135

PATIENT
  Age: 77 Year
  Sex: Female

DRUGS (6)
  1. OXYGEN [Suspect]
  2. OMEPRAZOLE [Suspect]
  3. NEUPOGEN (FILGRASTIM) [Concomitant]
  4. SEPTRA DS (SULFAMETHOXAZOLE-TRIMETHOPRIM) [Concomitant]
  5. TAZOCIN (PIPERACILLIN SODIUM: TAZOBACTAM SODIUM) [Concomitant]
  6. TOBRAMYCIN [Concomitant]

REACTIONS (2)
  - Neutropenia [None]
  - Pyrexia [None]
